APPROVED DRUG PRODUCT: MESALAMINE
Active Ingredient: MESALAMINE
Strength: 4GM/60ML
Dosage Form/Route: ENEMA;RECTAL
Application: A076841 | Product #001
Applicant: G AND W LABORATORIES INC
Approved: Sep 30, 2004 | RLD: No | RS: No | Type: DISCN